FAERS Safety Report 5031990-4 (Version None)
Quarter: 2006Q2

REPORT INFORMATION
  Report Type: 
  Country: None (occurrence: None)
  Receive Date: 20060614
  Receipt Date: 20060606
  Transmission Date: 20061013
  Serious: Yes (Other)
  Sender: FDA-Public Use
  Company Number: 2006BH009786

PATIENT
  Age: 41 Year
  Sex: Male

DRUGS (1)
  1. ARALAST [Suspect]

REACTIONS (1)
  - ANAPHYLACTIC REACTION [None]
